FAERS Safety Report 8857745 (Version 1)
Quarter: 2012Q4

REPORT INFORMATION
  Report Type: 
  Country: AT (occurrence: AT)
  Receive Date: 20121024
  Receipt Date: 20121024
  Transmission Date: 20130627
  Serious: Yes (Death)
  Sender: FDA-Public Use
  Company Number: AT-ACTELION-A-CH2012-72815

PATIENT
  Age: 81 Year
  Sex: Female

DRUGS (2)
  1. TRACLEER [Suspect]
     Indication: PULMONARY FIBROSIS
     Dosage: 125 mg, UNK
     Route: 048
  2. REMODULIN [Concomitant]

REACTIONS (1)
  - Pulmonary fibrosis [Fatal]
